FAERS Safety Report 19106288 (Version 1)
Quarter: 2021Q2

REPORT INFORMATION
  Report Type: Spontaneous
  Country: GB (occurrence: GB)
  Receive Date: 20210408
  Receipt Date: 20210408
  Transmission Date: 20210717
  Serious: Yes (Other)
  Sender: FDA-Public Use
  Company Number: GB-SUN PHARMACEUTICAL INDUSTRIES LTD-2021R1-289893

PATIENT
  Age: 48 Year
  Sex: Female

DRUGS (6)
  1. SULPHAMETHOXYPYRADIZINE [Suspect]
     Active Substance: SULFAMETHOXYPYRIDAZINE
     Indication: BENIGN FAMILIAL PEMPHIGUS
     Dosage: UNK
     Route: 065
  2. MINOCYCLINE [Suspect]
     Active Substance: MINOCYCLINE HYDROCHLORIDE
     Indication: BENIGN FAMILIAL PEMPHIGUS
     Dosage: UNK
     Route: 065
  3. SULFASALAZINE. [Suspect]
     Active Substance: SULFASALAZINE
     Indication: BENIGN FAMILIAL PEMPHIGUS
     Dosage: UNK
     Route: 065
  4. ACITRETIN. [Suspect]
     Active Substance: ACITRETIN
     Indication: BENIGN FAMILIAL PEMPHIGUS
     Dosage: UNK
     Route: 065
  5. LYMECYCLINE [Suspect]
     Active Substance: LYMECYCLINE
     Indication: BENIGN FAMILIAL PEMPHIGUS
     Dosage: UNK
     Route: 065
  6. DAPSONE. [Suspect]
     Active Substance: DAPSONE
     Indication: BENIGN FAMILIAL PEMPHIGUS
     Dosage: UNK
     Route: 065

REACTIONS (2)
  - Drug intolerance [Unknown]
  - Therapy non-responder [Unknown]
